FAERS Safety Report 6922928-0 (Version None)
Quarter: 2010Q3

REPORT INFORMATION
  Report Type: 
  Country: None (occurrence: None)
  Receive Date: 20100813
  Receipt Date: 20100802
  Transmission Date: 20110219
  Serious: Yes (Other)
  Sender: FDA-Public Use
  Company Number: PHHY2010FR18004

PATIENT
  Sex: Male

DRUGS (7)
  1. RASILEZ [Suspect]
     Dosage: 150 MG, DAILY
     Dates: start: 20090701
  2. ACETAMINOPHEN [Concomitant]
  3. CRESTOR [Concomitant]
  4. LASIX [Concomitant]
     Dosage: 40 MG
  5. ZANIDIP [Concomitant]
  6. NEBIVOLOL HCL [Concomitant]
     Dosage: 5 MG
  7. PREVISCAN [Concomitant]
     Dosage: 20 MG

REACTIONS (5)
  - ALANINE AMINOTRANSFERASE INCREASED [None]
  - ASPARTATE AMINOTRANSFERASE INCREASED [None]
  - GAMMA-GLUTAMYLTRANSFERASE INCREASED [None]
  - PRURITUS [None]
  - TRANSAMINASES INCREASED [None]
